FAERS Safety Report 14584165 (Version 4)
Quarter: 2018Q2

REPORT INFORMATION
  Report Type: Report from Study
  Country: US (occurrence: US)
  Receive Date: 20180228
  Receipt Date: 20180403
  Transmission Date: 20180711
  Serious: Yes (Hospitalization)
  Sender: FDA-Public Use
  Company Number: US-ASTRAZENECA-2018SE24714

PATIENT
  Age: 34022 Day
  Sex: Male

DRUGS (20)
  1. TAGRISSO [Suspect]
     Active Substance: OSIMERTINIB
     Indication: EGFR GENE MUTATION
     Route: 048
     Dates: start: 20171107, end: 20180105
  2. METOPROLOL SUCCINATE. [Concomitant]
     Active Substance: METOPROLOL SUCCINATE
     Indication: HYPERTENSION
     Route: 048
  3. TAGRISSO [Suspect]
     Active Substance: OSIMERTINIB
     Indication: NON-SMALL CELL LUNG CANCER
     Route: 048
     Dates: start: 20180125, end: 20180225
  4. AZD6094 [Suspect]
     Active Substance: SAVOLITINIB
     Indication: NON-SMALL CELL LUNG CANCER
     Route: 048
     Dates: start: 20180125, end: 20180225
  5. ACETAMINOPHEN. [Concomitant]
     Active Substance: ACETAMINOPHEN
     Indication: CANCER PAIN
     Dosage: AS REQUIRED
     Route: 048
     Dates: start: 20171019
  6. COLCHICINE. [Concomitant]
     Active Substance: COLCHICINE
     Indication: GOUT
     Dosage: 1 TABLET DAILY
     Route: 048
  7. KETOCONAZOLE. [Concomitant]
     Active Substance: KETOCONAZOLE
     Indication: RASH
     Dosage: AS REQUIRED
     Route: 003
  8. TAGRISSO [Suspect]
     Active Substance: OSIMERTINIB
     Indication: NON-SMALL CELL LUNG CANCER
     Route: 048
     Dates: start: 20171107, end: 20180105
  9. IMODIUM [Concomitant]
     Active Substance: LOPERAMIDE HYDROCHLORIDE
     Indication: DIARRHOEA
     Dosage: AS REQUIRED
     Route: 048
  10. TADALAFIL [Concomitant]
     Active Substance: TADALAFIL
     Indication: ERECTILE DYSFUNCTION
     Dosage: AS REQUIRED
     Route: 048
  11. AZD6094 [Suspect]
     Active Substance: SAVOLITINIB
     Indication: EGFR GENE MUTATION
     Route: 048
     Dates: start: 20171107, end: 20180105
  12. AZD6094 [Suspect]
     Active Substance: SAVOLITINIB
     Indication: NON-SMALL CELL LUNG CANCER
     Route: 048
     Dates: start: 20171107, end: 20180105
  13. AZD6094 [Suspect]
     Active Substance: SAVOLITINIB
     Indication: EGFR GENE MUTATION
     Route: 048
     Dates: start: 20180125, end: 20180225
  14. CHOLECALCIFEROL [Concomitant]
     Active Substance: CHOLECALCIFEROL
     Indication: OSTEOPOROSIS PROPHYLAXIS
     Dosage: 1 TABLET DAILY
     Route: 048
  15. TAGRISSO [Suspect]
     Active Substance: OSIMERTINIB
     Indication: EGFR GENE MUTATION
     Route: 048
     Dates: start: 20180125, end: 20180225
  16. ASPIRIN. [Concomitant]
     Active Substance: ASPIRIN
     Indication: CARDIOVASCULAR EVENT PROPHYLAXIS
     Route: 048
  17. LEVOTHYROXINE. [Concomitant]
     Active Substance: LEVOTHYROXINE
     Indication: HYPOTHYROIDISM
     Dosage: 1 TABLET DAILY
     Route: 048
     Dates: start: 20171122
  18. FINASTERIDE. [Concomitant]
     Active Substance: FINASTERIDE
     Indication: BENIGN PROSTATIC HYPERPLASIA
     Dosage: 1 TABLET DAILY
     Route: 048
  19. CLOBETASOL [Concomitant]
     Active Substance: CLOBETASOL
     Indication: PARONYCHIA
     Dosage: 1 APLICATION TWO TIMES DAILY
     Route: 003
  20. LEVOFLOXACIN. [Concomitant]
     Active Substance: LEVOFLOXACIN
     Indication: PARONYCHIA
     Route: 048

REACTIONS (1)
  - Pneumonitis [Not Recovered/Not Resolved]

NARRATIVE: CASE EVENT DATE: 20180225
